FAERS Safety Report 11139513 (Version 1)
Quarter: 2015Q2

REPORT INFORMATION
  Report Type: Spontaneous
  Country: IT (occurrence: IT)
  Receive Date: 20150527
  Receipt Date: 20150527
  Transmission Date: 20150821
  Serious: Yes (Other)
  Sender: FDA-Public Use
  Company Number: IT-PFIZER INC-2015172698

PATIENT
  Age: 55 Year
  Sex: Female

DRUGS (4)
  1. SATIVEX [Suspect]
     Active Substance: NABIXIMOLS
     Dosage: 2,7 MG OF THC AND 2,5 MG OF CBD PER SINGLE-DOSE
  2. METHYLPREDNISOLONE. [Suspect]
     Active Substance: METHYLPREDNISOLONE
     Dosage: 8 MG FOR 3 DAYS
  3. METHYLPREDNISOLONE. [Suspect]
     Active Substance: METHYLPREDNISOLONE
     Dosage: 4 MG FOR 3 DAYS
  4. BACLOFEN. [Suspect]
     Active Substance: BACLOFEN
     Dosage: 50 MG, DAILY

REACTIONS (4)
  - Mania [Unknown]
  - Affective disorder [Unknown]
  - Depression [Unknown]
  - Suicidal ideation [Unknown]
